FAERS Safety Report 13071920 (Version 1)
Quarter: 2016Q4

REPORT INFORMATION
  Report Type: Spontaneous
  Country: US (occurrence: US)
  Receive Date: 20161228
  Receipt Date: 20161228
  Transmission Date: 20170207
  Serious: Yes (Hospitalization, Disabling)
  Sender: FDA-Public Use
  Company Number: None

PATIENT
  Age: 51 Year
  Sex: Male
  Weight: 90 kg

DRUGS (3)
  1. ADVIL [Concomitant]
     Active Substance: IBUPROFEN
  2. ENBREL [Concomitant]
     Active Substance: ETANERCEPT
  3. LEVAQUIN [Suspect]
     Active Substance: LEVOFLOXACIN
     Indication: COUGH
     Route: 048

REACTIONS (7)
  - Pain [None]
  - Memory impairment [None]
  - Dyspnoea [None]
  - Middle insomnia [None]
  - Paraesthesia [None]
  - Psoriatic arthropathy [None]
  - Muscle rupture [None]

NARRATIVE: CASE EVENT DATE: 20070601
